FAERS Safety Report 19277528 (Version 2)
Quarter: 2021Q3

REPORT INFORMATION
  Report Type: Spontaneous
  Country: US (occurrence: US)
  Receive Date: 20210520
  Receipt Date: 20210909
  Transmission Date: 20211014
  Serious: No
  Sender: FDA-Public Use
  Company Number: US-GLAXOSMITHKLINE-US2021103233

PATIENT
  Sex: Female

DRUGS (1)
  1. ANORO ELLIPTA [Suspect]
     Active Substance: UMECLIDINIUM BROMIDE\VILANTEROL TRIFENATATE
     Indication: PRODUCT USED FOR UNKNOWN INDICATION
     Dosage: 1 PUFF(S), QD  62.5/25 MCG
     Route: 055
     Dates: start: 20210421

REACTIONS (4)
  - Musculoskeletal stiffness [Unknown]
  - Myalgia [Recovered/Resolved]
  - Product label confusion [Unknown]
  - Neck pain [Unknown]
